FAERS Safety Report 19764697 (Version 1)
Quarter: 2021Q3

REPORT INFORMATION
  Report Type: Spontaneous
  Country: US (occurrence: US)
  Receive Date: 20210830
  Receipt Date: 20210830
  Transmission Date: 20211014
  Serious: No
  Sender: FDA-Public Use
  Company Number: US-AMGEN-USASP2021130741

PATIENT
  Age: 73 Year
  Sex: Female

DRUGS (3)
  1. LUMAKRAS [Suspect]
     Active Substance: SOTORASIB
     Indication: K-RAS GENE MUTATION
  2. LUMAKRAS [Suspect]
     Active Substance: SOTORASIB
     Indication: COLON CANCER
     Dosage: UNK
     Route: 065
     Dates: start: 20210801
  3. LUMAKRAS [Suspect]
     Active Substance: SOTORASIB
     Indication: OFF LABEL USE

REACTIONS (2)
  - Gastrooesophageal reflux disease [Unknown]
  - Off label use [Unknown]

NARRATIVE: CASE EVENT DATE: 202108
